FAERS Safety Report 5012138-9 (Version None)
Quarter: 2006Q2

REPORT INFORMATION
  Report Type: 
  Country: None (occurrence: None)
  Receive Date: 20060524
  Receipt Date: 20060520
  Transmission Date: 20061013
  Serious: Yes (Death, Hospitalization)
  Sender: FDA-Public Use
  Company Number: 223403

PATIENT
  Age: 70 Year
  Sex: Male
  Weight: 101.2 kg

DRUGS (8)
  1. AVASTIN [Suspect]
     Indication: NON-SMALL CELL LUNG CANCER
     Dosage: 1527 MG, Q3W, INTRAVENOUS
     Route: 042
  2. CARBOPLATIN [Suspect]
     Indication: NON-SMALL CELL LUNG CANCER
     Dosage: 996 MG, Q3W, INTRAVENOUS
     Route: 042
     Dates: start: 20060214
  3. PEMETREXED(PEMETREXED) [Suspect]
     Indication: NON-SMALL CELL LUNG CANCER
     Dosage: 1105 MG, Q3W, INTRAVENOUS
     Route: 042
  4. OXYCONTIN [Concomitant]
  5. NOROC (ACETAMINOPHEN, HYDROCODONE BITARTRATE) [Concomitant]
  6. XANAX [Concomitant]
  7. DEXAMETHASONE [Concomitant]
  8. FOLIC ACID [Concomitant]

REACTIONS (6)
  - ASTHENIA [None]
  - BACK PAIN [None]
  - CONDITION AGGRAVATED [None]
  - DISEASE PROGRESSION [None]
  - PNEUMONIA [None]
  - SPINAL DISORDER [None]
